FAERS Safety Report 6095234-7 (Version None)
Quarter: 2009Q1

REPORT INFORMATION
  Report Type: 
  Country: None (occurrence: None)
  Receive Date: 20090227
  Receipt Date: 20080218
  Transmission Date: 20090719
  Serious: No
  Sender: FDA-Public Use
  Company Number: A0710271A

PATIENT
  Age: 19 Year
  Sex: Male

DRUGS (3)
  1. LAMICTAL [Suspect]
     Indication: BIPOLAR DISORDER
     Dosage: 400MG PER DAY
     Route: 048
     Dates: start: 20060101, end: 20070101
  2. CONCERTA [Concomitant]
  3. FLOMAX [Concomitant]

REACTIONS (2)
  - DRUG INEFFECTIVE [None]
  - URINARY RETENTION [None]
